FAERS Safety Report 9063362 (Version 1)
Quarter: 2013Q1

REPORT INFORMATION
  Report Type: Report from Study
  Country: US (occurrence: US)
  Receive Date: 20130129
  Receipt Date: 20130129
  Transmission Date: 20140127
  Serious: No
  Sender: FDA-Public Use
  Company Number: US-ABBOTT-12P-163-0949469-00

PATIENT
  Age: 52 Year
  Sex: Female

DRUGS (5)
  1. HUMIRA 40 MG/0.8 ML PEN [Suspect]
     Indication: CROHN^S DISEASE
     Dates: start: 20111020, end: 20120209
  2. IMURAN [Concomitant]
     Indication: PRODUCT USED FOR UNKNOWN INDICATION
     Dosage: DAILY
     Route: 048
  3. PREDNISONE [Concomitant]
     Indication: CROHN^S DISEASE
     Dosage: DAILY
     Route: 048
  4. PREDNISONE [Concomitant]
     Dosage: 5 MG DAILY (WEANED FROM 30 MG DAILY)
     Route: 048
  5. URSODIOL [Concomitant]
     Indication: HEPATIC ENZYME INCREASED
     Dosage: DAILY
     Route: 048

REACTIONS (2)
  - Diarrhoea [Not Recovered/Not Resolved]
  - Crohn^s disease [Not Recovered/Not Resolved]
